FAERS Safety Report 15143659 (Version 2)
Quarter: 2019Q3

REPORT INFORMATION
  Report Type: Spontaneous
  Country: US (occurrence: US)
  Receive Date: 20180713
  Receipt Date: 20190814
  Transmission Date: 20191004
  Serious: Yes (Other)
  Sender: FDA-Public Use
  Company Number: US-PFIZER INC-2017247972

PATIENT
  Age: 32 Year
  Sex: Male
  Weight: 104.3 kg

DRUGS (5)
  1. DILANTIN [Suspect]
     Active Substance: PHENYTOIN
     Indication: SEIZURE
     Dosage: 500 MG, DAILY(TWO CAPSULE EVERY MORNING AND 3 TABS AT BEDTIME)
     Route: 048
  2. DILANTIN [Suspect]
     Active Substance: PHENYTOIN
     Indication: PARTIAL SEIZURES
     Dosage: 200 MG, 2X/DAY(100MG CAPSULES TWO IN THE MORNING AND TWO AROUND 6PM)
     Route: 048
     Dates: start: 1957
  3. KEPPRA [Concomitant]
     Active Substance: LEVETIRACETAM
     Dosage: 500 MG, 2X/DAY (FOR 30 DAYS )
     Route: 048
  4. KEPPRA XR [Concomitant]
     Active Substance: LEVETIRACETAM
     Dosage: 500 MG, 2X/DAY  (FOR 30 DAYS )
     Route: 048
  5. PHENOBARBITAL. [Concomitant]
     Active Substance: PHENOBARBITAL
     Dosage: 97.2 MG, 1X/DAY (3 (THREE) TABLET (ORAL) QHS FOR 90 DAYS )
     Route: 048

REACTIONS (7)
  - Intentional product use issue [Unknown]
  - Therapeutic response unexpected [Unknown]
  - Body height decreased [Unknown]
  - Femur fracture [Unknown]
  - Limb asymmetry [Unknown]
  - Fall [Unknown]
  - Muscle atrophy [Unknown]

NARRATIVE: CASE EVENT DATE: 19800403
